FAERS Safety Report 23968466 (Version 1)
Quarter: 2024Q2

REPORT INFORMATION
  Report Type: Spontaneous
  Country: FR (occurrence: FR)
  Receive Date: 20240612
  Receipt Date: 20240612
  Transmission Date: 20240716
  Serious: Yes (Congenital Anomaly)
  Sender: FDA-Public Use
  Company Number: None

PATIENT
  Age: 5 Day
  Sex: Male

DRUGS (3)
  1. EBASTINE [Suspect]
     Active Substance: EBASTINE
     Indication: Maternal exposure during pregnancy
     Dosage: 13 WA TO 15 WA
     Dates: start: 202211, end: 202212
  2. FEXOFENADINE [Suspect]
     Active Substance: FEXOFENADINE HYDROCHLORIDE
     Indication: Maternal exposure during pregnancy
     Dosage: 180 MG /DAY FROM 15.6 WEEKS TO 18 WEEKS
     Dates: start: 202212, end: 202301
  3. EBASTINE [Suspect]
     Active Substance: EBASTINE
     Indication: Maternal exposure during pregnancy
     Dosage: 0 WA TO 15.5 WA
     Dates: start: 20220901, end: 202212

REACTIONS (1)
  - External auditory canal atresia [Not Recovered/Not Resolved]

NARRATIVE: CASE EVENT DATE: 20230512
